FAERS Safety Report 4752055-2 (Version None)
Quarter: 2005Q3

REPORT INFORMATION
  Report Type: 
  Country: None (occurrence: None)
  Receive Date: 20050824
  Receipt Date: 20050419
  Transmission Date: 20060218
  Serious: Yes (Hospitalization)
  Sender: FDA-Public Use
  Company Number: US-MERCK-0504USA03747

PATIENT
  Age: 62 Year
  Sex: Female
  Weight: 62 kg

DRUGS (21)
  1. VIOXX [Suspect]
     Indication: ARTHRALGIA
     Route: 048
     Dates: start: 20010101, end: 20041005
  2. VIOXX [Suspect]
     Route: 048
     Dates: start: 20010101, end: 20041005
  3. ATENOLOL [Concomitant]
     Route: 065
  4. CHLORAZEPATE [Concomitant]
     Route: 065
  5. FOSAMAX [Concomitant]
     Indication: OSTEOPENIA
     Route: 048
  6. HYDROCODONE BITARTRATE [Concomitant]
     Route: 065
  7. INDERAL LA [Concomitant]
     Indication: HYPERTENSION
     Route: 065
     Dates: start: 19990101
  8. INDERAL LA [Concomitant]
     Indication: HEADACHE
     Route: 065
     Dates: start: 19990101
  9. LIPITOR [Concomitant]
     Indication: BLOOD CHOLESTEROL DECREASED
     Route: 065
     Dates: start: 20040101, end: 20040101
  10. PROCARDIA [Concomitant]
     Indication: HYPERTENSION
     Route: 065
     Dates: start: 19970101, end: 20000101
  11. PHENERGAN (PROMETHAZINE HYDROCHLORIDE) [Concomitant]
     Indication: HEADACHE
     Route: 065
  12. PHENERGAN (PROMETHAZINE HYDROCHLORIDE) [Concomitant]
     Indication: PAIN
     Route: 065
  13. PREMARIN [Concomitant]
     Indication: HORMONE REPLACEMENT THERAPY
     Route: 065
     Dates: start: 19970101, end: 20040101
  14. PROPRANOLOL HYDROCHLORIDE [Concomitant]
     Route: 065
  15. HYDROCHLOROTHIAZIDE AND TRIAMTERENE [Concomitant]
     Indication: JOINT SWELLING
     Route: 065
  16. HYDROCHLOROTHIAZIDE AND TRIAMTERENE [Concomitant]
     Indication: OEDEMA PERIPHERAL
     Route: 065
  17. TRIMOX [Concomitant]
     Route: 065
  18. ULTRAM [Concomitant]
     Route: 065
  19. ZITHROMAX [Concomitant]
     Route: 065
  20. ASPIRIN [Concomitant]
     Route: 065
  21. NIFEDIPINE [Concomitant]
     Route: 065

REACTIONS (5)
  - CORONARY ARTERY DISEASE [None]
  - DYSPEPSIA [None]
  - FIBROCYSTIC BREAST DISEASE [None]
  - MITRAL VALVE PROLAPSE [None]
  - MYOCARDIAL INFARCTION [None]
